FAERS Safety Report 18418793 (Version 1)
Quarter: 2020Q4

REPORT INFORMATION
  Report Type: Spontaneous
  Country: US (occurrence: US)
  Receive Date: 20201022
  Receipt Date: 20201022
  Transmission Date: 20210114
  Serious: Yes (Hospitalization)
  Sender: FDA-Public Use
  Company Number: None

PATIENT
  Age: 54 Year
  Sex: Female

DRUGS (18)
  1. ASPRIN LOW DOSE [Concomitant]
  2. LISINOPRIL. [Concomitant]
     Active Substance: LISINOPRIL
  3. ATOROVASTATIN [Concomitant]
  4. BUSIPRONE [Concomitant]
  5. CORGARD [Concomitant]
     Active Substance: NADOLOL
  6. HYDROXYCLOR TAB [Concomitant]
  7. PLAQUENIL [Concomitant]
     Active Substance: HYDROXYCHLOROQUINE SULFATE
  8. VALACYCLOVIR [Concomitant]
     Active Substance: VALACYCLOVIR HYDROCHLORIDE
  9. ESZOPICLONE. [Concomitant]
     Active Substance: ESZOPICLONE
  10. HYDROXYZ HCL [Concomitant]
     Active Substance: HYDROXYZINE HYDROCHLORIDE
  11. LEVOTHYROXIN [Concomitant]
     Active Substance: LEVOTHYROXINE
  12. CYCLOBENZAPRINE. [Concomitant]
     Active Substance: CYCLOBENZAPRINE
  13. SMZ/TMP [Concomitant]
     Active Substance: SULFAMETHOXAZOLE\TRIMETHOPRIM
  14. ENBREL [Suspect]
     Active Substance: ETANERCEPT
     Indication: RHEUMATOID ARTHRITIS
     Dosage: ?          OTHER FREQUENCY:WEEKLY;?
     Route: 058
     Dates: start: 20200901
  15. CEPHALEXIN. [Concomitant]
     Active Substance: CEPHALEXIN
  16. HYDROCOD/APAP [Concomitant]
  17. NADLOLO [Concomitant]
  18. UNITRHOID [Concomitant]

REACTIONS (1)
  - Infection [None]

NARRATIVE: CASE EVENT DATE: 20201001
